FAERS Safety Report 8613962-3 (Version None)
Quarter: 2012Q3

REPORT INFORMATION
  Report Type: 
  Country: None (occurrence: None)
  Receive Date: 20120809
  Receipt Date: 20120727
  Transmission Date: 20120928
  Serious: Yes (Hospitalization)
  Sender: FDA-Public Use
  Company Number: GER/GER/12/0025297

PATIENT
  Age: 53 Year
  Sex: Male
  Weight: 101 kg

DRUGS (1)
  1. RAMIPRIL [Suspect]
     Indication: ESSENTIAL HYPERTENSION
     Dosage: 5 MG, 1 IN 1 D, ORAL
     Route: 048
     Dates: start: 20120210

REACTIONS (3)
  - HAEMATOMA [None]
  - PRURITUS [None]
  - URTICARIA [None]
